FAERS Safety Report 14456108 (Version 1)
Quarter: 2018Q1

REPORT INFORMATION
  Report Type: Spontaneous
  Country: NL (occurrence: NL)
  Receive Date: 20180130
  Receipt Date: 20180130
  Transmission Date: 20180509
  Serious: Yes (Hospitalization)
  Sender: FDA-Public Use
  Company Number: NL-ROCHE-2061540

PATIENT
  Sex: Female
  Weight: 57 kg

DRUGS (1)
  1. XELODA [Suspect]
     Active Substance: CAPECITABINE
     Indication: RECTAL CANCER
     Dosage: 3X2
     Route: 050
     Dates: start: 2011, end: 2011

REACTIONS (1)
  - Toxicity to various agents [Recovered/Resolved]
